FAERS Safety Report 9037556 (Version 2)
Quarter: 2013Q2

REPORT INFORMATION
  Report Type: Spontaneous
  Country: US (occurrence: US)
  Receive Date: 20130129
  Receipt Date: 20130422
  Transmission Date: 20140414
  Serious: Yes (Other)
  Sender: FDA-Public Use
  Company Number: US-009507513-1301USA011733

PATIENT
  Age: 16 Year
  Sex: Female

DRUGS (1)
  1. TEMODAR [Suspect]
     Route: 048

REACTIONS (1)
  - Bone marrow failure [Unknown]
